FAERS Safety Report 23594850 (Version 2)
Quarter: 2024Q2

REPORT INFORMATION
  Report Type: Spontaneous
  Country: NZ (occurrence: None)
  Receive Date: 20240305
  Receipt Date: 20240405
  Transmission Date: 20240716
  Serious: Yes (Death)
  Sender: FDA-Public Use
  Company Number: 2024A053062

PATIENT
  Age: 77 Year
  Sex: Female

DRUGS (5)
  1. ROSUVASTATIN [Suspect]
     Active Substance: ROSUVASTATIN
     Indication: Product used for unknown indication
     Dosage: 40.0MG UNKNOWN
     Route: 048
     Dates: start: 20220927, end: 20221019
  2. CANDESARTAN [Interacting]
     Active Substance: CANDESARTAN
     Indication: Essential hypertension
     Route: 048
     Dates: start: 20141001, end: 20221018
  3. SIMVASTATIN [Suspect]
     Active Substance: SIMVASTATIN
     Route: 048
     Dates: start: 20140101, end: 20220901
  4. QUETIAPINE [Concomitant]
     Active Substance: QUETIAPINE
     Route: 048
     Dates: start: 20170701, end: 20221018
  5. FUROSEMIDE [Concomitant]
     Active Substance: FUROSEMIDE
     Indication: Cardiac failure congestive
     Route: 048
     Dates: start: 20140901, end: 20221018

REACTIONS (5)
  - Drug interaction [Fatal]
  - Rhabdomyolysis [Fatal]
  - Multiple organ dysfunction syndrome [Fatal]
  - Death [Fatal]
  - Myocardial infarction [Fatal]
